FAERS Safety Report 5908319-X (Version None)
Quarter: 2008Q4

REPORT INFORMATION
  Report Type: 
  Country: None (occurrence: None)
  Receive Date: 20081002
  Receipt Date: 20081002
  Transmission Date: 20090506
  Serious: No
  Sender: FDA-Public Use
  Company Number: None

PATIENT

DRUGS (1)
  1. ATIVAN [Suspect]
     Indication: ANXIETY
     Dosage: 1MG PO TID
     Route: 048

REACTIONS (5)
  - CHRONIC FATIGUE SYNDROME [None]
  - CONDITION AGGRAVATED [None]
  - DRUG INTOLERANCE [None]
  - FIBROMYALGIA [None]
  - PRODUCT QUALITY ISSUE [None]
